FAERS Safety Report 5165994-8 (Version None)
Quarter: 2006Q4

REPORT INFORMATION
  Report Type: 
  Country: None (occurrence: None)
  Receive Date: 20061128
  Receipt Date: 20061117
  Transmission Date: 20070319
  Serious: Yes (Life-Threatening, Hospitalization)
  Sender: FDA-Public Use
  Company Number: MYVW-PR-0611S-0054

PATIENT
  Age: 44 Year
  Sex: Male

DRUGS (6)
  1. MYOVIEW [Suspect]
     Indication: ARRHYTHMIA
     Dosage: SEE IMAGE
     Route: 042
     Dates: start: 20061116, end: 20061116
  2. MYOVIEW [Suspect]
     Indication: HYPERTENSION
     Dosage: SEE IMAGE
     Route: 042
     Dates: start: 20061116, end: 20061116
  3. MYOVIEW [Suspect]
     Indication: ARRHYTHMIA
     Dosage: SEE IMAGE
     Route: 042
     Dates: start: 20061116, end: 20061116
  4. MYOVIEW [Suspect]
     Indication: HYPERTENSION
     Dosage: SEE IMAGE
     Route: 042
     Dates: start: 20061116, end: 20061116
  5. BLOOD PRESSURE MEDICATIONS [Concomitant]
  6. CHOLESTEROL MEDICATIONS [Concomitant]

REACTIONS (4)
  - DELIRIUM [None]
  - ESCHERICHIA INFECTION [None]
  - PNEUMONIA [None]
  - PYREXIA [None]
